FAERS Safety Report 20810318 (Version 2)
Quarter: 2022Q2

REPORT INFORMATION
  Report Type: Spontaneous
  Country: FR (occurrence: FR)
  Receive Date: 20220510
  Receipt Date: 20220525
  Transmission Date: 20220721
  Serious: Yes (Hospitalization)
  Sender: FDA-Public Use
  Company Number: None

PATIENT
  Age: 67 Year
  Sex: Male

DRUGS (7)
  1. TEGRETOL [Suspect]
     Active Substance: CARBAMAZEPINE
     Indication: Trigeminal neuralgia
     Dosage: 250 MG, QD
     Route: 048
     Dates: start: 2015, end: 202101
  2. TEGRETOL [Suspect]
     Active Substance: CARBAMAZEPINE
     Dosage: 400 MG, QD
     Route: 048
     Dates: start: 202101, end: 20210312
  3. TEGRETOL [Suspect]
     Active Substance: CARBAMAZEPINE
     Dosage: 600 MG, QD
     Route: 048
     Dates: start: 20210312, end: 20210314
  4. TRILEPTAL [Suspect]
     Active Substance: OXCARBAZEPINE
     Indication: Trigeminal neuralgia
     Dosage: 300 MG (150 MG, 2/D)
     Route: 048
     Dates: start: 20210317
  5. LIDOCAINE [Suspect]
     Active Substance: LIDOCAINE
     Indication: Trigeminal neuralgia
     Dosage: 5 MG/KG
     Route: 042
     Dates: start: 20210317, end: 20210322
  6. CALCIPARINE [Suspect]
     Active Substance: HEPARIN CALCIUM
     Indication: Prophylaxis
     Dosage: UNK
     Route: 058
     Dates: start: 20210314
  7. RIVOTRIL [Suspect]
     Active Substance: CLONAZEPAM
     Indication: Trigeminal neuralgia
     Dosage: 9 DOSAGE FORM (3 GTT, 3/D)
     Route: 048
     Dates: start: 2015

REACTIONS (2)
  - Hepatic cytolysis [Not Recovered/Not Resolved]
  - Product use in unapproved indication [Unknown]

NARRATIVE: CASE EVENT DATE: 20150101
